FAERS Safety Report 15483363 (Version 1)
Quarter: 2018Q4

REPORT INFORMATION
  Report Type: Spontaneous
  Country: US (occurrence: US)
  Receive Date: 20181010
  Receipt Date: 20181010
  Transmission Date: 20190205
  Serious: No
  Sender: FDA-Public Use
  Company Number: US-TARO-2018TAR00434

PATIENT
  Age: 40 Year
  Sex: Female
  Weight: 93.88 kg

DRUGS (3)
  1. MUPIROCIN OINTMENT USP 2% [Suspect]
     Active Substance: MUPIROCIN
     Indication: ACNE
     Dosage: NICKEL SIZE, 1X/DAY
     Route: 061
     Dates: start: 20180515, end: 20180524
  2. MUPIROCIN OINTMENT USP 2% [Suspect]
     Active Substance: MUPIROCIN
     Dosage: NICKEL SIZE, 2X/DAY
     Route: 061
     Dates: start: 20180525, end: 20180527
  3. UNSPECIFIED MULTIVITAMINS [Concomitant]

REACTIONS (4)
  - Rash [Recovering/Resolving]
  - Pruritus [Recovering/Resolving]
  - Off label use [Recovered/Resolved]
  - Pain [Unknown]

NARRATIVE: CASE EVENT DATE: 2018
